FAERS Safety Report 20999483 (Version 1)
Quarter: 2022Q2

REPORT INFORMATION
  Report Type: Spontaneous
  Country: US (occurrence: None)
  Receive Date: 20220622
  Receipt Date: 20220622
  Transmission Date: 20220720
  Serious: Yes (Other)
  Sender: FDA-Public Use
  Company Number: None

PATIENT
  Age: 75 Year
  Sex: Female
  Weight: 79.38 kg

DRUGS (1)
  1. FUNGI NAIL ANTI-FUNGAL PEN [Suspect]
     Active Substance: TOLNAFTATE
     Indication: Onychomycosis
     Dosage: FREQUENCY : TWICE A DAY;?
     Route: 061
     Dates: start: 20191016

REACTIONS (7)
  - Product advertising issue [None]
  - Product use complaint [None]
  - Drug ineffective [None]
  - Product formulation issue [None]
  - Drug hypersensitivity [None]
  - Alopecia [None]
  - Scar [None]

NARRATIVE: CASE EVENT DATE: 20191016
